FAERS Safety Report 5646209-0 (Version None)
Quarter: 2008Q1

REPORT INFORMATION
  Report Type: 
  Country: None (occurrence: None)
  Receive Date: 20080227
  Receipt Date: 20080212
  Transmission Date: 20080703
  Serious: Yes (Hospitalization)
  Sender: FDA-Public Use
  Company Number: S08-FRA-00684-01

PATIENT
  Age: 77 Year
  Sex: Male

DRUGS (5)
  1. CITALOPRAM HYDROBROMIDE [Suspect]
     Indication: MAJOR DEPRESSION
     Dates: start: 20060101
  2. CITALOPRAM HYDROBROMIDE [Suspect]
     Indication: MAJOR DEPRESSION
     Dosage: 40 MG QD PO
     Route: 048
     Dates: end: 20071027
  3. TRILEPTAL [Concomitant]
  4. LASIX [Concomitant]
  5. PERINDOPRIL ERBUMINE [Concomitant]

REACTIONS (5)
  - BLOOD PRESSURE INCREASED [None]
  - FAECALOMA [None]
  - HYPERKALAEMIA [None]
  - HYPONATRAEMIA [None]
  - VOMITING [None]
